FAERS Safety Report 25724738 (Version 1)
Quarter: 2025Q3

REPORT INFORMATION
  Report Type: Spontaneous
  Country: US (occurrence: US)
  Receive Date: 20250826
  Receipt Date: 20250826
  Transmission Date: 20251020
  Serious: No
  Sender: ROCHE
  Company Number: US-ROCHE-10000368197

PATIENT
  Sex: Female

DRUGS (2)
  1. ACTEMRA [Suspect]
     Active Substance: TOCILIZUMAB
     Indication: Rheumatoid arthritis
     Dosage: 80 MG/ 4ML
     Route: 042
     Dates: start: 202507
  2. RINVOQ [Concomitant]
     Active Substance: UPADACITINIB

REACTIONS (1)
  - Herpes zoster [Unknown]
